FAERS Safety Report 12103729 (Version 2)
Quarter: 2016Q2

REPORT INFORMATION
  Report Type: Report from Study
  Country: US (occurrence: US)
  Receive Date: 20160223
  Receipt Date: 20160414
  Transmission Date: 20160815
  Serious: No
  Sender: FDA-Public Use
  Company Number: US-AMGEN-USASL2016018588

PATIENT
  Age: 53 Year
  Sex: Male

DRUGS (1)
  1. ENBREL [Suspect]
     Active Substance: ETANERCEPT
     Indication: RHEUMATOID ARTHRITIS
     Dosage: 50 MG, QWK
     Route: 065
     Dates: start: 20160204

REACTIONS (7)
  - Visual acuity reduced [Not Recovered/Not Resolved]
  - Injection site dryness [Unknown]
  - Injection site pruritus [Unknown]
  - Ocular discomfort [Not Recovered/Not Resolved]
  - Influenza [Unknown]
  - Upper respiratory tract infection [Unknown]
  - Vision blurred [Not Recovered/Not Resolved]

NARRATIVE: CASE EVENT DATE: 2016
